FAERS Safety Report 5379223-3 (Version None)
Quarter: 2007Q3

REPORT INFORMATION
  Report Type: 
  Country: None (occurrence: None)
  Receive Date: 20070705
  Receipt Date: 20070628
  Transmission Date: 20080115
  Serious: Yes (Other)
  Sender: FDA-Public Use
  Company Number: GB-PFIZER INC-2007053883

PATIENT
  Age: 43 Year
  Sex: Male

DRUGS (2)
  1. SERTRALINE HYDROCHLORIDE [Suspect]
     Dosage: DAILY DOSE:50MG
     Route: 048
  2. CLOZARIL [Suspect]
     Indication: SCHIZOPHRENIA
     Dosage: DAILY DOSE:450MG
     Route: 048

REACTIONS (1)
  - ANTIPSYCHOTIC DRUG LEVEL INCREASED [None]
